FAERS Safety Report 8775982 (Version 1)
Quarter: 2012Q4

REPORT INFORMATION
  Report Type: 
  Country: JP (occurrence: US)
  Receive Date: 20120910
  Receipt Date: 20120910
  Transmission Date: 20130627
  Serious: Yes (Hospitalization, Disabling, Other)
  Sender: FDA-Public Use
  Company Number: US-009507513-1203USA03363

PATIENT

DRUGS (8)
  1. FOSAMAX [Suspect]
     Indication: OSTEOPOROSIS
     Dosage: 70 mg, UNK
     Route: 048
     Dates: start: 199606, end: 201006
  2. FOSAMAX [Suspect]
     Indication: OSTEOPENIA
  3. FOSAMAX [Suspect]
     Indication: OSTEOPOROSIS
     Dosage: 70 mg, UNK
     Route: 048
  4. ACTONEL [Concomitant]
     Indication: OSTEOPOROSIS PROPHYLAXIS
     Dosage: 150 mg, UNK
     Dates: start: 201006, end: 201010
  5. CALCIUM (UNSPECIFIED) [Concomitant]
  6. VITAMIN D (UNSPECIFIED) [Concomitant]
  7. SINGULAIR [Concomitant]
     Indication: HYPERSENSITIVITY
     Dosage: 10 mg, UNK
     Route: 048
  8. FLUTICASONE [Concomitant]
     Indication: HYPERSENSITIVITY
     Dosage: 40 mg, UNK
     Route: 055

REACTIONS (15)
  - Femur fracture [Recovering/Resolving]
  - Osteoporosis [Not Recovered/Not Resolved]
  - Stress fracture [Not Recovered/Not Resolved]
  - Femur fracture [Not Recovered/Not Resolved]
  - Low turnover osteopathy [Not Recovered/Not Resolved]
  - Tibia fracture [Unknown]
  - Adverse event [Unknown]
  - Road traffic accident [Unknown]
  - Uterine polyp [Unknown]
  - Fallopian tube disorder [Unknown]
  - Intervertebral disc disorder [Unknown]
  - Bone density decreased [Unknown]
  - Hypercholesterolaemia [Unknown]
  - Upper-airway cough syndrome [Unknown]
  - Impaired healing [Unknown]
